FAERS Safety Report 6546177-3 (Version None)
Quarter: 2010Q1

REPORT INFORMATION
  Report Type: 
  Country: None (occurrence: None)
  Receive Date: 20100119
  Receipt Date: 20100113
  Transmission Date: 20100710
  Serious: Yes (Other)
  Sender: FDA-Public Use
  Company Number: 1000011176

PATIENT
  Age: 59 Year
  Sex: Male
  Weight: 88.905 kg

DRUGS (12)
  1. BYSTOLIC [Suspect]
     Indication: ESSENTIAL TREMOR
     Dosage: 5 MG (5 MG,1 IN 1 D),ORAL
     Route: 048
     Dates: start: 20090421, end: 20090604
  2. BYSTOLIC [Suspect]
     Indication: HYPERTENSION
     Dosage: 5 MG (5 MG,1 IN 1 D),ORAL
     Route: 048
     Dates: start: 20090421, end: 20090604
  3. BYSTOLIC [Suspect]
     Indication: ESSENTIAL TREMOR
     Dosage: 5 MG (5 MG,1 IN 1 D), ORAL
     Route: 048
     Dates: start: 20090601, end: 20090601
  4. BYSTOLIC [Suspect]
     Indication: HYPERTENSION
     Dosage: 5 MG (5 MG,1 IN 1 D), ORAL
     Route: 048
     Dates: start: 20090601, end: 20090601
  5. EFFEXOR ER (TABLETS) [Concomitant]
  6. HYDROCHLOROTHIAZIDE [Concomitant]
  7. SIMVASTATIN [Concomitant]
  8. FLOMAX (TABLETS) [Concomitant]
  9. ASPIRIN [Concomitant]
  10. M.V.I. [Concomitant]
  11. FISH OIL [Concomitant]
  12. COD LIVER OIL [Concomitant]

REACTIONS (4)
  - CONDITION AGGRAVATED [None]
  - DEPRESSION [None]
  - SELF-MEDICATION [None]
  - SUICIDAL IDEATION [None]
